FAERS Safety Report 14861217 (Version 13)
Quarter: 2019Q1

REPORT INFORMATION
  Report Type: Spontaneous
  Country: DE (occurrence: DE)
  Receive Date: 20180508
  Receipt Date: 20190111
  Transmission Date: 20190417
  Serious: Yes (Death, Life-Threatening, Hospitalization, Other)
  Sender: FDA-Public Use
  Company Number: DE-SA-2018SA116965

PATIENT
  Age: 73 Year
  Sex: Female
  Weight: 69 kg

DRUGS (69)
  1. EUNERPAN [Suspect]
     Active Substance: MELPERONE HYDROCHLORIDE
     Indication: RESTLESSNESS
     Dosage: DOSE RANGED FROM 80-105 MG DAILY
     Route: 048
     Dates: start: 20010706, end: 20010712
  2. SODIUM PERCHLORATE [Concomitant]
     Active Substance: SODIUM PERCHLORATE
     Dosage: UNK UNK, UNK
     Route: 048
     Dates: start: 20010618, end: 20010714
  3. RAMIPRIL. [Suspect]
     Active Substance: RAMIPRIL
     Dosage: 5 UNK, UNK
     Route: 048
     Dates: start: 20010616, end: 20010714
  4. AMLODIPINE [Suspect]
     Active Substance: AMLODIPINE BESYLATE
     Indication: CORONARY ARTERY DISEASE
     Dosage: 5 MG, QD
     Route: 048
     Dates: start: 20010703, end: 20010714
  5. CLORAZEPATE DIPOTASSIUM. [Suspect]
     Active Substance: CLORAZEPATE DIPOTASSIUM
     Indication: RESTLESSNESS
     Dosage: 10 MG, UNK
     Route: 048
     Dates: start: 20010710, end: 20010714
  6. BISOPROLOL FUMARATE. [Suspect]
     Active Substance: BISOPROLOL FUMARATE
     Indication: CORONARY ARTERY DISEASE
     Dosage: 8 MG, EVERY 29 DAYS
     Route: 048
     Dates: start: 20010616, end: 20010714
  7. CLORAZEPATE DIPOTASSIUM. [Suspect]
     Active Substance: CLORAZEPATE DIPOTASSIUM
     Indication: RESTLESSNESS
     Dosage: 10 MG, QD
     Route: 048
     Dates: start: 20010710, end: 20010714
  8. HALDOL DECANOATE [Suspect]
     Active Substance: HALOPERIDOL DECANOATE
     Indication: RESTLESSNESS
     Dosage: UNK
     Route: 048
     Dates: start: 20010713, end: 20010714
  9. HALDOL DECANOATE [Suspect]
     Active Substance: HALOPERIDOL DECANOATE
     Dosage: UNK
     Route: 048
     Dates: start: 20010713, end: 20010714
  10. LEXOTANIL [Concomitant]
     Active Substance: BROMAZEPAM
     Indication: RESTLESSNESS
     Dosage: 1.5 MG, BID
     Route: 048
     Dates: start: 20010713, end: 20010714
  11. HALOPERIDOL. [Concomitant]
     Active Substance: HALOPERIDOL
     Indication: RESTLESSNESS
     Dosage: UNK
     Route: 048
     Dates: start: 20010713, end: 20010714
  12. BROMAZEPAM [Concomitant]
     Active Substance: BROMAZEPAM
     Indication: RESTLESSNESS
     Dosage: UNK UNK, UNK
     Route: 048
     Dates: start: 20010713, end: 20010714
  13. LANTUS [Suspect]
     Active Substance: INSULIN GLARGINE
     Indication: DIABETES MELLITUS
     Dosage: 16 IU, UNK
     Route: 058
     Dates: start: 20010616, end: 20010629
  14. CIPROFLOXACIN HYDROCHLORIDE. [Suspect]
     Active Substance: CIPROFLOXACIN HYDROCHLORIDE
     Indication: CHOLECYSTITIS
     Dosage: 500 MG, BID
     Route: 048
     Dates: start: 20010620, end: 20010628
  15. CIPROFLOXACIN HYDROCHLORIDE. [Suspect]
     Active Substance: CIPROFLOXACIN HYDROCHLORIDE
     Dosage: 250 MG,BID
     Route: 048
     Dates: start: 20010710, end: 20010711
  16. ATORVASTATIN CALCIUM. [Suspect]
     Active Substance: ATORVASTATIN CALCIUM
     Indication: HYPERLIPIDAEMIA
     Dosage: 20 MG, QD
     Route: 048
     Dates: start: 20010616, end: 20010703
  17. TRANXENE [Suspect]
     Active Substance: CLORAZEPATE DIPOTASSIUM
     Indication: RESTLESSNESS
     Dosage: 10 MG, QD
     Route: 048
     Dates: start: 20010710, end: 20010714
  18. YEAST DRIED [Suspect]
     Active Substance: YEAST
     Indication: DIARRHOEA
     Dosage: 100 MG, UNK
     Route: 048
     Dates: start: 20010711, end: 20010714
  19. LANTUS [Concomitant]
     Active Substance: INSULIN GLARGINE
     Indication: DIABETES MELLITUS
     Dosage: 16 IU, QD
     Route: 058
     Dates: start: 20010616, end: 20010629
  20. AMARYL [Suspect]
     Active Substance: GLIMEPIRIDE
     Indication: DIABETES MELLITUS
     Dosage: 3 MG, EVERY 18 DAYS
     Route: 048
     Dates: start: 20010616, end: 20010703
  21. PARACETAMOL [Suspect]
     Active Substance: ACETAMINOPHEN
     Indication: PAIN
     Dosage: 500 MG, QD
     Route: 048
     Dates: start: 20010711, end: 20010711
  22. DIGOXIN. [Suspect]
     Active Substance: DIGOXIN
     Dosage: UNK
     Route: 048
     Dates: start: 20010703
  23. AMPHOTERICIN B/TETRACYCLINE [Suspect]
     Active Substance: AMPHOTERICIN B\TETRACYCLINE
     Indication: ANTIFUNGAL PROPHYLAXIS
     Dosage: 200 MG, QD
     Route: 048
     Dates: start: 20010703, end: 20010714
  24. PANTOPRAZOLE [Suspect]
     Active Substance: PANTOPRAZOLE
     Dosage: 80 MG,QD
     Route: 048
  25. DIAZEPAM. [Suspect]
     Active Substance: DIAZEPAM
     Indication: RESTLESSNESS
     Dosage: 5 MG, UNK
     Route: 048
     Dates: start: 20010616, end: 20010703
  26. DIAZEPAM. [Suspect]
     Active Substance: DIAZEPAM
     Dosage: 15 MG, QD
     Route: 048
     Dates: start: 20010616, end: 20010703
  27. PANTOPRAZOLE SODIUM. [Suspect]
     Active Substance: PANTOPRAZOLE SODIUM
     Indication: PROPHYLAXIS
     Dosage: 80 MG, QD
     Route: 048
     Dates: start: 20010616
  28. CAPTOPRIL. [Suspect]
     Active Substance: CAPTOPRIL
     Indication: CORONARY ARTERY DISEASE
     Dosage: 1 DF, EVERY 29 DAYS, 1MOL/ML
     Route: 048
     Dates: start: 20010616, end: 20010714
  29. PERENTEROL [Suspect]
     Active Substance: SACCHAROMYCES CEREVISIAE
     Indication: DIARRHOEA
     Dosage: 300 MG, UNK
     Route: 048
     Dates: start: 20010711, end: 20010714
  30. NOVODIGAL (.BETA.-ACETYLDIGOXIN) [Suspect]
     Active Substance: .BETA.-ACETYLDIGOXIN
     Indication: CORONARY ARTERY DISEASE
     Dosage: 1 DF, UNK
     Route: 048
     Dates: start: 20010703
  31. LEXOTANIL [Concomitant]
     Active Substance: BROMAZEPAM
     Dosage: 2 UNK
     Route: 048
     Dates: start: 20010713, end: 20010714
  32. GLIMEPIRIDE. [Concomitant]
     Active Substance: GLIMEPIRIDE
     Dosage: 3 MG, QD, EVERY DAYS
     Route: 048
     Dates: start: 20010616, end: 20010703
  33. BISOPROLOL FUMARATE. [Concomitant]
     Active Substance: BISOPROLOL FUMARATE
     Indication: CORONARY ARTERY DISEASE
     Dosage: 5 MG, UNK
     Route: 048
  34. POTASSIUM [Concomitant]
     Active Substance: POTASSIUM
     Indication: ELECTROLYTE IMBALANCE
     Dosage: 1500 MG, Q12H
     Route: 048
     Dates: start: 20010703, end: 20010714
  35. AMPHOTERICIN B/TETRACYCLINE [Suspect]
     Active Substance: AMPHOTERICIN B\TETRACYCLINE
     Dosage: 8 DF, QD
     Route: 048
     Dates: start: 20010703, end: 20010714
  36. METFORMIN HYDROCHLORIDE. [Suspect]
     Active Substance: METFORMIN HYDROCHLORIDE
     Indication: CORONARY ARTERY DISEASE
     Dosage: 7 MG, QD
     Route: 048
     Dates: start: 20010616, end: 20010714
  37. CEFTRIAXONE SODIUM. [Suspect]
     Active Substance: CEFTRIAXONE SODIUM
     Indication: PYREXIA
     Dosage: 1 G,BID
     Route: 042
     Dates: start: 20010629, end: 20010703
  38. ISOSORBIDE MONONITRATE. [Suspect]
     Active Substance: ISOSORBIDE MONONITRATE
     Indication: CORONARY ARTERY DISEASE
     Dosage: 1 DF, QD
     Route: 048
     Dates: start: 20010703, end: 20010714
  39. METOCLOPRAMIDE HYDROCHLORIDE. [Suspect]
     Active Substance: METOCLOPRAMIDE HYDROCHLORIDE
     Indication: NAUSEA
     Dosage: 7 MG, QD
     Route: 048
     Dates: start: 20010704, end: 20010712
  40. METOCLOPRAMIDE HYDROCHLORIDE. [Suspect]
     Active Substance: METOCLOPRAMIDE HYDROCHLORIDE
     Dosage: 75 MG, QD
     Route: 048
     Dates: start: 20010704, end: 20010712
  41. METOLAZONE. [Suspect]
     Active Substance: METOLAZONE
     Indication: HYPERTENSION
     Dosage: 2 MG, UNK
     Route: 048
     Dates: start: 20010712, end: 20010713
  42. FRAGMIN [Suspect]
     Active Substance: DALTEPARIN SODIUM
     Indication: THROMBOSIS PROPHYLAXIS
     Dosage: 2500 IU, Q12D
     Route: 058
     Dates: start: 20010703, end: 20010714
  43. HALDOL DECANOATE [Suspect]
     Active Substance: HALOPERIDOL DECANOATE
     Dosage: UNK
     Route: 048
     Dates: start: 20010713, end: 20010714
  44. POTASSIUM CHLORIDE. [Concomitant]
     Active Substance: POTASSIUM CHLORIDE
     Indication: ELECTROLYTE IMBALANCE
     Dosage: UNK UNK, UNK
     Route: 048
     Dates: start: 20010703, end: 20010714
  45. GLIMEPIRIDE. [Concomitant]
     Active Substance: GLIMEPIRIDE
     Indication: DIABETES MELLITUS
     Dosage: 3 MG, UNK, EVERY 18 DAYS
     Route: 048
     Dates: start: 20010616, end: 20010703
  46. RAMIPRIL. [Suspect]
     Active Substance: RAMIPRIL
     Indication: CORONARY ARTERY DISEASE
     Dosage: 5 MG, QD
     Route: 048
     Dates: start: 20010616, end: 20010714
  47. ACETYLSALICYLIC ACID [Suspect]
     Active Substance: ASPIRIN
     Indication: CORONARY ARTERY DISEASE
     Dosage: 100 MG, QD
     Route: 048
     Dates: start: 20010616, end: 20010714
  48. DIGOXIN. [Suspect]
     Active Substance: DIGOXIN
     Dosage: 0.2 MG, QD
     Route: 048
     Dates: start: 20010703, end: 20010714
  49. MOLSIDOMINE [Suspect]
     Active Substance: MOLSIDOMINE
     Dosage: 8 MG, QD
     Route: 048
     Dates: start: 20010703, end: 20010714
  50. PANTOZOL [Suspect]
     Active Substance: PANTOPRAZOLE SODIUM
     Indication: DYSPNOEA
     Dosage: 50 MG, QD
     Route: 042
     Dates: start: 20010703, end: 20010703
  51. FRAGMIN [Suspect]
     Active Substance: DALTEPARIN SODIUM
     Dosage: UNK
     Route: 058
     Dates: start: 20010703, end: 20010714
  52. RAMIPRIL. [Suspect]
     Active Substance: RAMIPRIL
     Dosage: 10 MG, UNK
     Route: 048
     Dates: start: 20010616, end: 20010714
  53. LASIX [Suspect]
     Active Substance: FUROSEMIDE
     Indication: HYPERTENSION
     Dosage: 120 MG,QD
     Route: 042
     Dates: start: 20010703, end: 20010714
  54. DIGOXIN. [Suspect]
     Active Substance: DIGOXIN
     Indication: CORONARY ARTERY DISEASE
     Dosage: 0.3 MG, UNK
     Route: 048
     Dates: start: 20010703, end: 20010714
  55. AMLODIPINE [Suspect]
     Active Substance: AMLODIPINE BESYLATE
     Dosage: 10 MG, QD
     Route: 048
     Dates: start: 20010703, end: 20010714
  56. PANTOPRAZOLE [Suspect]
     Active Substance: PANTOPRAZOLE
     Indication: PROPHYLAXIS
     Dosage: 80 MG, QD
     Route: 048
     Dates: start: 20010616, end: 20010714
  57. PLAVIX [Suspect]
     Active Substance: CLOPIDOGREL BISULFATE
     Indication: CORONARY ARTERY DISEASE
     Dosage: 75 MG, QD
     Route: 048
     Dates: start: 20010704, end: 20010714
  58. DIGOXIN. [Suspect]
     Active Substance: DIGOXIN
     Dosage: UNK
     Route: 048
     Dates: start: 20010703, end: 20010714
  59. PANTOPRAZOLE SODIUM. [Suspect]
     Active Substance: PANTOPRAZOLE SODIUM
     Dosage: 80 MG, QD
     Route: 048
     Dates: end: 20010714
  60. CARBIMAZOLE [Suspect]
     Active Substance: CARBIMAZOLE
     Indication: HYPERTHYROIDISM
     Dosage: 20 MG, QD
     Route: 048
     Dates: start: 20010621, end: 20010714
  61. PREDNISONE. [Suspect]
     Active Substance: PREDNISONE
     Indication: RESTLESSNESS
  62. PANTOZOL [Suspect]
     Active Substance: PANTOPRAZOLE SODIUM
     Indication: PROPHYLAXIS
  63. IRENAT [Suspect]
     Active Substance: SODIUM PERCHLORATE
     Indication: HYPERTHYROIDISM
     Dosage: 688 MG, UNK
     Route: 048
     Dates: start: 20010618, end: 20010714
  64. FRAGMIN [Suspect]
     Active Substance: DALTEPARIN SODIUM
     Dosage: UNK
     Route: 058
     Dates: start: 20010703, end: 20010714
  65. EUNERPAN [Suspect]
     Active Substance: MELPERONE HYDROCHLORIDE
     Dosage: 16 ML
     Route: 048
     Dates: start: 20010706, end: 20010712
  66. HALDOL DECANOATE [Suspect]
     Active Substance: HALOPERIDOL DECANOATE
     Route: 048
     Dates: start: 20010713, end: 20010714
  67. METFORMIN HYDROCHLORIDE. [Suspect]
     Active Substance: METFORMIN HYDROCHLORIDE
     Indication: DIABETES MELLITUS
     Dosage: 250 MG, UNK
     Route: 048
     Dates: start: 20010616, end: 20010714
  68. MOLSIDOMINE [Suspect]
     Active Substance: MOLSIDOMINE
     Indication: CORONARY ARTERY DISEASE
     Dosage: 8 MG, Q12D
     Route: 048
     Dates: start: 20010703, end: 20010714
  69. PREDNISONE. [Suspect]
     Active Substance: PREDNISONE
     Indication: DYSPNOEA
     Dosage: 50 MG, QD
     Route: 048
     Dates: start: 20010703, end: 20010703

REACTIONS (15)
  - Toxic epidermal necrolysis [Fatal]
  - Diarrhoea [Fatal]
  - Dermatitis exfoliative [Fatal]
  - Hyperthyroidism [Fatal]
  - Restlessness [Unknown]
  - Condition aggravated [Fatal]
  - Restlessness [Fatal]
  - Cholecystitis [Fatal]
  - Electrolyte imbalance [Fatal]
  - Nausea [Fatal]
  - Multiple organ dysfunction syndrome [Fatal]
  - Cholelithiasis [Fatal]
  - Erythema [Fatal]
  - Respiratory disorder [Fatal]
  - Blister [Fatal]

NARRATIVE: CASE EVENT DATE: 20010704
